FAERS Safety Report 25048475 (Version 1)
Quarter: 2025Q1

REPORT INFORMATION
  Report Type: Spontaneous
  Country: US (occurrence: US)
  Receive Date: 20250307
  Receipt Date: 20250307
  Transmission Date: 20250409
  Serious: No
  Sender: GLENMARK
  Company Number: US-GLENMARK PHARMACEUTICALS-2024GMK095637

PATIENT

DRUGS (1)
  1. ETHINYL ESTRADIOL\NORETHINDRONE ACETATE [Suspect]
     Active Substance: ETHINYL ESTRADIOL\NORETHINDRONE ACETATE
     Indication: Product used for unknown indication
     Dosage: UNK, 1 MG/0.02 MG QD
     Route: 048
     Dates: start: 20241019, end: 20241026

REACTIONS (6)
  - Fatigue [Unknown]
  - Hypertension [Unknown]
  - Insomnia [Unknown]
  - Dizziness [Unknown]
  - Decreased appetite [Unknown]
  - Presyncope [Unknown]

NARRATIVE: CASE EVENT DATE: 20241018
